FAERS Safety Report 6995991-9 (Version None)
Quarter: 2010Q3

REPORT INFORMATION
  Report Type: 
  Country: None (occurrence: None)
  Receive Date: 20100918
  Receipt Date: 20081202
  Transmission Date: 20110219
  Serious: No
  Sender: FDA-Public Use
  Company Number: US-WYE-H07123008

PATIENT
  Sex: Female
  Weight: 67.19 kg

DRUGS (4)
  1. EFFEXOR XR [Suspect]
     Indication: ANXIETY
     Route: 048
     Dates: start: 20061101, end: 20081103
  2. EFFEXOR XR [Suspect]
     Indication: DEPRESSION
  3. TRAZODONE HCL [Concomitant]
  4. COMBIVENT [Concomitant]

REACTIONS (4)
  - CONDITION AGGRAVATED [None]
  - INSOMNIA [None]
  - MUSCLE TIGHTNESS [None]
  - TENSION [None]
